FAERS Safety Report 8618592-5 (Version None)
Quarter: 2012Q3

REPORT INFORMATION
  Report Type: 
  Country: None (occurrence: None)
  Receive Date: 20120824
  Receipt Date: 20120816
  Transmission Date: 20120928
  Serious: Yes (Other)
  Sender: FDA-Public Use
  Company Number: US-PFIZER INC-2012204594

PATIENT
  Sex: Female

DRUGS (1)
  1. VANCOMYCIN HCL [Suspect]
     Indication: CLOSTRIDIAL INFECTION
     Dosage: UNK

REACTIONS (1)
  - DRUG INEFFECTIVE [None]
